FAERS Safety Report 6228109-0 (Version None)
Quarter: 2009Q2

REPORT INFORMATION
  Report Type: 
  Country: None (occurrence: None)
  Receive Date: 20090612
  Receipt Date: 20090604
  Transmission Date: 20091009
  Serious: Yes (Other)
  Sender: FDA-Public Use
  Company Number: US-JNJFOC-20090602284

PATIENT
  Sex: Female

DRUGS (4)
  1. TOPAMAX [Suspect]
     Indication: MIGRAINE PROPHYLAXIS
     Route: 048
  2. RISPERDAL [Suspect]
     Indication: MIGRAINE
     Route: 048
  3. HYDROXYZINE HCL [Suspect]
     Indication: MIGRAINE
     Dosage: 25MG/ML
     Route: 030
  4. AIRMAX [Concomitant]
     Indication: RESPIRATORY DISORDER
     Dosage: AS NEEDED
     Route: 065

REACTIONS (4)
  - AKATHISIA [None]
  - ELECTROCARDIOGRAM CHANGE [None]
  - HYPERTENSION [None]
  - OFF LABEL USE [None]
